FAERS Safety Report 4539203-4 (Version None)
Quarter: 2004Q4

REPORT INFORMATION
  Report Type: 
  Country: None (occurrence: None)
  Receive Date: 20041227
  Receipt Date: 20041227
  Transmission Date: 20050328
  Serious: Yes (Hospitalization)
  Sender: FDA-Public Use
  Company Number: None

PATIENT
  Age: 43 Year
  Sex: Female
  Weight: 72.5755 kg

DRUGS (2)
  1. TIAGABINE  4 MG  CEPHALON [Suspect]
     Indication: ANXIETY
     Dosage: 8 MG  TWICE A DAY ORAL
     Route: 048
     Dates: start: 20040901, end: 20040908
  2. EFFEXOR XR [Concomitant]

REACTIONS (1)
  - COMPLEX PARTIAL SEIZURES [None]
